FAERS Safety Report 6629158 (Version 2)
Quarter: 2014Q3

REPORT INFORMATION
  Report Type: Spontaneous
  Country: US (occurrence: US)
  Receive Date: 20080430
  Receipt Date: 20140704
  Transmission Date: 20150326
  Serious: Yes (Other)
  Sender: FDA-Public Use
  Company Number: US-ASTRAZENECA-2008UW02763

PATIENT
  Age: 26959 Day
  Sex: Female
  Weight: 74.8 kg

DRUGS (8)
  1. OPTIVAR [Concomitant]
     Active Substance: AZELASTINE HYDROCHLORIDE
     Indication: CONJUNCTIVITIS
     Route: 047
     Dates: start: 20071117
  2. RHINOCORT AQUA [Concomitant]
     Active Substance: BUDESONIDE
     Indication: RHINITIS
     Dosage: ONE SPRAY EACH NOSTRIL HS
     Route: 045
     Dates: start: 20071117
  3. SYMBICORT [Suspect]
     Active Substance: BUDESONIDE\FORMOTEROL FUMARATE DIHYDRATE
     Dosage: 160/4.5 MICROGRAMS, TWO PUFFS TWO TIMES DAILY
     Route: 055
  4. NEXIUM [Suspect]
     Active Substance: ESOMEPRAZOLE MAGNESIUM
     Indication: GASTROOESOPHAGEAL REFLUX DISEASE
     Route: 048
  5. NEXIUM [Suspect]
     Active Substance: ESOMEPRAZOLE MAGNESIUM
     Indication: GASTROOESOPHAGEAL REFLUX DISEASE
     Route: 048
  6. TRIAMCINOLONE [Concomitant]
     Active Substance: TRIAMCINOLONE
     Indication: DERMATITIS
     Route: 061
     Dates: start: 20080118
  7. SYMBICORT [Suspect]
     Active Substance: BUDESONIDE\FORMOTEROL FUMARATE DIHYDRATE
     Dosage: 160/4.5 MICROGRAMS, ONE PUFFS TWO TIMES DAILY
     Route: 055
  8. ASMANEX [Concomitant]
     Active Substance: MOMETASONE FUROATE
     Indication: ASTHMA
     Route: 055
     Dates: start: 20080115

REACTIONS (12)
  - Urinary tract infection [Recovered/Resolved]
  - Dysphonia [Unknown]
  - Cough [Unknown]
  - Eye irritation [Unknown]
  - Dysphagia [Unknown]
  - Off label use [Unknown]
  - Malaise [Unknown]
  - Intentional product misuse [Unknown]
  - Cataract [Unknown]
  - Hypertension [Unknown]
  - Eye disorder [Unknown]
  - Thyroid disorder [Unknown]

NARRATIVE: CASE EVENT DATE: 20080204
